FAERS Safety Report 8760116 (Version 4)
Quarter: 2013Q2

REPORT INFORMATION
  Report Type: Spontaneous
  Country: US (occurrence: US)
  Receive Date: 20120829
  Receipt Date: 20130510
  Transmission Date: 20140414
  Serious: Yes (Hospitalization, Other)
  Sender: FDA-Public Use
  Company Number: US-B.I. PHARMACEUTICALS,INC./RIDGEFIELD-2012-BP-20326BP

PATIENT
  Age: 86 Year
  Sex: Female
  Weight: 68.04 kg

DRUGS (13)
  1. PRADAXA [Suspect]
     Indication: ATRIAL FIBRILLATION
     Dosage: 300 MG
     Route: 048
     Dates: start: 20110519, end: 20111228
  2. PRADAXA [Suspect]
     Dosage: 150 MG
     Route: 048
     Dates: start: 20111229, end: 20120331
  3. OCUVITE [Concomitant]
  4. CEPHALEXIN [Concomitant]
  5. METOPROLOL TARTRATE [Concomitant]
  6. COZAAR [Concomitant]
     Dosage: 50 MG
     Route: 048
  7. ALDACTONE [Concomitant]
     Dosage: 25 MG
     Route: 048
  8. ZOCOR [Concomitant]
     Dosage: 20 MG
     Route: 048
  9. NORVASC [Concomitant]
     Dosage: 2.5 MG
     Route: 048
  10. CELEXA [Concomitant]
     Dosage: 40 MG
     Route: 048
  11. IMDUR [Concomitant]
     Dosage: 30 MG
     Route: 048
  12. LASIX [Concomitant]
     Dosage: 40 MG
     Route: 048
  13. BYSTOLIC [Concomitant]
     Dosage: 5 MG

REACTIONS (6)
  - Epistaxis [Recovered/Resolved]
  - Gastrointestinal haemorrhage [Unknown]
  - Respiratory failure [Recovered/Resolved]
  - Epistaxis [Recovered/Resolved]
  - Epistaxis [Recovered/Resolved]
  - Anaemia [Unknown]
